FAERS Safety Report 4922779-2 (Version None)
Quarter: 2006Q1

REPORT INFORMATION
  Report Type: 
  Country: None (occurrence: None)
  Receive Date: 20060221
  Receipt Date: 20060127
  Transmission Date: 20060701
  Serious: Yes (Death, Life-Threatening, Hospitalization)
  Sender: FDA-Public Use
  Company Number: 6014552

PATIENT
  Age: 48 Year
  Sex: Female

DRUGS (11)
  1. VANCOMYCIN [Suspect]
     Dosage: 1,5  GM (1,5 GM, 1 D), INTRAVENOUS
     Route: 042
     Dates: start: 20050417, end: 20050421
  2. ALPRAZOLAM [Suspect]
     Indication: ANXIETY
     Dosage: 1 DOSAGE FORMS (1 DOSAGE FORMS, 1 IN 1 D)
     Dates: start: 20050402, end: 20050406
  3. GENTAMICIN [Suspect]
     Dosage: 180 MG (180 MG, 1 D), INTRAVENOUS
     Route: 042
     Dates: start: 20050417, end: 20050421
  4. IMOVANE (7,5 MG, TABLET) (ZOPICLONE) [Suspect]
     Dosage: 7,5 MG (Y,5 MG, 1 IN 1 D), ORAL
     Route: 048
     Dates: start: 20050412, end: 20050416
  5. LOVENOX [Suspect]
     Dosage: SUBCUTANEOUS
     Route: 058
  6. CORDARONE [Suspect]
     Dosage: 142, 8571 MG (200 MG, 5 IN 1 WK), ORAL
     Route: 048
     Dates: start: 20050312, end: 20050416
  7. MORPHINE SULFATE [Suspect]
     Indication: PAIN
     Dosage: ORAL
  8. ACTISKENAN (CAPSULE)(MORPHINE SULFATE) [Suspect]
     Indication: PAIN
     Dosage: ORAL
  9. PARACETRAMOL (PARACETAMOL) [Suspect]
     Indication: PAIN
  10. ATARAX [Suspect]
     Indication: ANXIETY
     Dates: start: 20050407
  11. ATARAX [Suspect]
     Indication: PRURITUS
     Dates: start: 20050407

REACTIONS (16)
  - ACUTE RESPIRATORY DISTRESS SYNDROME [None]
  - ANXIETY [None]
  - CONDITION AGGRAVATED [None]
  - DIALYSIS [None]
  - ERYTHEMA MULTIFORME [None]
  - EXTREMITY NECROSIS [None]
  - FINGER AMPUTATION [None]
  - GAMMA-GLUTAMYLTRANSFERASE INCREASED [None]
  - HAND AMPUTATION [None]
  - HEPATIC ENZYME INCREASED [None]
  - LEG AMPUTATION [None]
  - PRURITUS [None]
  - RENAL FAILURE [None]
  - ROSEOLA [None]
  - TOE AMPUTATION [None]
  - TOXIC EPIDERMAL NECROLYSIS [None]
